FAERS Safety Report 7621853-X (Version None)
Quarter: 2011Q3

REPORT INFORMATION
  Report Type: 
  Country: None (occurrence: None)
  Receive Date: 20110720
  Receipt Date: 20110711
  Transmission Date: 20111222
  Serious: No
  Sender: FDA-Public Use
  Company Number: US-BIOGENIDEC-2011BI012631

PATIENT
  Sex: Female

DRUGS (1)
  1. TYSABRI [Suspect]
     Indication: MULTIPLE SCLEROSIS
     Route: 042
     Dates: start: 20110222

REACTIONS (6)
  - INFLUENZA LIKE ILLNESS [None]
  - PRURITUS GENERALISED [None]
  - PRURITUS [None]
  - RASH GENERALISED [None]
  - RASH PRURITIC [None]
  - ERYTHEMA [None]
